FAERS Safety Report 17277817 (Version 2)
Quarter: 2020Q1

REPORT INFORMATION
  Report Type: Spontaneous
  Country: BR (occurrence: BR)
  Receive Date: 20200116
  Receipt Date: 20200213
  Transmission Date: 20200409
  Serious: Yes (Hospitalization, Other)
  Sender: FDA-Public Use
  Company Number: BR-PFIZER INC-2020012855

PATIENT
  Age: 63 Year
  Sex: Female
  Weight: 51 kg

DRUGS (2)
  1. CELEBRA [Suspect]
     Active Substance: CELECOXIB
     Indication: TENDONITIS
     Dosage: 200 MG, 1X/DAY
     Dates: start: 20200106
  2. CELEBRA [Suspect]
     Active Substance: CELECOXIB
     Indication: ARTHRALGIA

REACTIONS (14)
  - Hyperhidrosis [Recovered/Resolved]
  - Feeling hot [Recovered/Resolved]
  - Drug hypersensitivity [Recovered/Resolved]
  - Pruritus [Recovered/Resolved]
  - Skin exfoliation [Recovered/Resolved]
  - Dysstasia [Recovered/Resolved]
  - Chills [Recovered/Resolved]
  - Gastrointestinal pain [Unknown]
  - Tremor [Recovered/Resolved]
  - Defaecation urgency [Recovered/Resolved]
  - Ear discomfort [Recovered/Resolved]
  - Blood pressure decreased [Recovered/Resolved]
  - Mouth swelling [Recovered/Resolved]
  - Nausea [Recovered/Resolved]

NARRATIVE: CASE EVENT DATE: 20200106
